FAERS Safety Report 10041080 (Version 2)
Quarter: 2014Q1

REPORT INFORMATION
  Report Type: Spontaneous
  Country: US (occurrence: US)
  Receive Date: 20140327
  Receipt Date: 20140327
  Transmission Date: 20141002
  Serious: Yes (Hospitalization, Other)
  Sender: FDA-Public Use
  Company Number: US-ASTELLAS-2014US002756

PATIENT
  Age: 53 Year
  Sex: Male

DRUGS (1)
  1. PROGRAF [Suspect]
     Indication: LIVER TRANSPLANT
     Dosage: 3 MG, UID/QD (1 MG IN AM AND 2 MG IN PM)
     Route: 048
     Dates: start: 20080328

REACTIONS (5)
  - Suture rupture [Unknown]
  - Graft haemorrhage [Unknown]
  - Infection [Unknown]
  - Blood glucose increased [Unknown]
  - Spider vein [Unknown]
